FAERS Safety Report 24202969 (Version 1)
Quarter: 2024Q3

REPORT INFORMATION
  Report Type: Spontaneous
  Country: US (occurrence: US)
  Receive Date: 20240813
  Receipt Date: 20240813
  Transmission Date: 20241016
  Serious: No
  Sender: SPECGX
  Company Number: US-SPECGX-T202302172

PATIENT
  Sex: Male
  Weight: 104 kg

DRUGS (5)
  1. OXYCODONE [Suspect]
     Active Substance: OXYCODONE
     Indication: Pain
     Dosage: 15 MILLIGRAM, 5 TIMES A DAY
     Route: 048
  2. OXYCODONE [Suspect]
     Active Substance: OXYCODONE
     Dosage: 15 MILLIGRAM, 4 TIMES A DAY
     Route: 048
  3. DESVENLAFAXINE [Concomitant]
     Active Substance: DESVENLAFAXINE
     Indication: Anxiety
     Dosage: 50 MILLIGRAM, QD
     Route: 065
  4. DESVENLAFAXINE [Concomitant]
     Active Substance: DESVENLAFAXINE
     Indication: Neuralgia
  5. ZOLPIDEM [Concomitant]
     Active Substance: ZOLPIDEM TARTRATE
     Indication: Sleep disorder therapy
     Dosage: UNK
     Route: 065

REACTIONS (3)
  - Somnolence [Unknown]
  - Intentional product use issue [Unknown]
  - Therapeutic product effect decreased [Unknown]

NARRATIVE: CASE EVENT DATE: 20230101
